FAERS Safety Report 5194012-0 (Version None)
Quarter: 2006Q4

REPORT INFORMATION
  Report Type: 
  Country: None (occurrence: None)
  Receive Date: 20061228
  Receipt Date: 20061120
  Transmission Date: 20070319
  Serious: No
  Sender: FDA-Public Use
  Company Number: US-GLAXOSMITHKLINE-A0628106A

PATIENT
  Age: 78 Year
  Sex: Female

DRUGS (3)
  1. FLOVENT [Suspect]
     Indication: ASTHMA
     Route: 055
  2. PROVENTIL [Concomitant]
  3. VITAMINS [Concomitant]

REACTIONS (4)
  - CANDIDIASIS [None]
  - DYSPHAGIA [None]
  - DYSPHONIA [None]
  - THROAT IRRITATION [None]
